FAERS Safety Report 6596596-4 (Version None)
Quarter: 2010Q1

REPORT INFORMATION
  Report Type: 
  Country: None (occurrence: None)
  Receive Date: 20100222
  Receipt Date: 20100222
  Transmission Date: 20100710
  Serious: Yes (Other)
  Sender: FDA-Public Use
  Company Number: None

PATIENT
  Age: 66 Year
  Sex: Female
  Weight: 81.6475 kg

DRUGS (2)
  1. VIBRAMYCIN [Suspect]
     Indication: ASTHMA
     Dosage: 100 MG BID PO
     Route: 048
     Dates: start: 20100131, end: 20100202
  2. VIBRAMYCIN [Suspect]
     Indication: BRONCHITIS
     Dosage: 100 MG BID PO
     Route: 048
     Dates: start: 20100131, end: 20100202

REACTIONS (7)
  - ASTHENIA [None]
  - DECREASED APPETITE [None]
  - DYSPHAGIA [None]
  - FEELING HOT [None]
  - MALAISE [None]
  - OESOPHAGEAL DISORDER [None]
  - REGURGITATION [None]
